FAERS Safety Report 8250114-3 (Version None)
Quarter: 2012Q1

REPORT INFORMATION
  Report Type: 
  Country: None (occurrence: None)
  Receive Date: 20120319
  Receipt Date: 20090423
  Transmission Date: 20120608
  Serious: No
  Sender: FDA-Public Use
  Company Number: PHEH2009US04276

PATIENT
  Age: 52 Year
  Sex: Female

DRUGS (1)
  1. TEKTURNA HCT [Suspect]

REACTIONS (3)
  - PARAESTHESIA ORAL [None]
  - MUSCLE SPASMS [None]
  - RASH [None]
